FAERS Safety Report 6018574-6 (Version None)
Quarter: 2008Q4

REPORT INFORMATION
  Report Type: 
  Country: None (occurrence: None)
  Receive Date: 20081223
  Receipt Date: 20081205
  Transmission Date: 20090506
  Serious: Yes (Hospitalization)
  Sender: FDA-Public Use
  Company Number: DE-B.I. PHARMACEUTICALS,INC./RIDGEFIELD-2008-DE-07222DE

PATIENT
  Age: 56 Year
  Sex: Male

DRUGS (3)
  1. MICARDIS HCT [Suspect]
     Indication: CHEST DISCOMFORT
     Dosage: 80 MG TELMISARTAN / 25 MG HCT
     Route: 048
  2. MICARDIS HCT [Suspect]
     Indication: BLOOD PRESSURE
  3. RIFUN [Concomitant]
     Indication: ABDOMINAL PAIN UPPER

REACTIONS (2)
  - CORONARY ARTERY STENOSIS [None]
  - HYPERTENSIVE CRISIS [None]
